FAERS Safety Report 5730519-2 (Version None)
Quarter: 2008Q2

REPORT INFORMATION
  Report Type: 
  Country: None (occurrence: None)
  Receive Date: 20080507
  Receipt Date: 20080430
  Transmission Date: 20081010
  Serious: Yes (Other)
  Sender: FDA-Public Use
  Company Number: DE-ABBOTT-08P-062-0449689-00

PATIENT
  Age: 69 Year
  Sex: Male

DRUGS (1)
  1. NICOTINIC ACID [Suspect]
     Indication: DRUG USE FOR UNKNOWN INDICATION
     Dates: start: 20080301

REACTIONS (9)
  - ANXIETY [None]
  - CHILLS [None]
  - CONTUSION [None]
  - DIARRHOEA [None]
  - FLUSHING [None]
  - GLOSSODYNIA [None]
  - HYPOTENSION [None]
  - SYNCOPE [None]
  - VOMITING [None]
